FAERS Safety Report 8766935 (Version 2)
Quarter: 2012Q4

REPORT INFORMATION
  Report Type: 
  Country: US (occurrence: US)
  Receive Date: 20120903
  Receipt Date: 20121018
  Transmission Date: 20130627
  Serious: Yes (Other)
  Sender: FDA-Public Use
  Company Number: US-PFIZER INC-2012214502

PATIENT
  Age: 47 Year

DRUGS (1)
  1. LYRICA [Suspect]
     Dosage: 150 mg, 3x/day
     Route: 048

REACTIONS (1)
  - Musculoskeletal discomfort [Unknown]
